FAERS Safety Report 12068942 (Version 1)
Quarter: 2016Q1

REPORT INFORMATION
  Report Type: Report from Study
  Country: CA (occurrence: CA)
  Receive Date: 20160211
  Receipt Date: 20160211
  Transmission Date: 20160526
  Serious: Yes (Death, Hospitalization, Other)
  Sender: FDA-Public Use
  Company Number: CA-AMGEN-CANSL2016014897

PATIENT
  Sex: Female

DRUGS (1)
  1. PROLIA [Suspect]
     Active Substance: DENOSUMAB
     Indication: PRODUCT USED FOR UNKNOWN INDICATION
     Dosage: 60 MG, Q6MO
     Route: 058

REACTIONS (5)
  - Cardiac disorder [Unknown]
  - Bone pain [Unknown]
  - Death [Fatal]
  - Asthenia [Unknown]
  - Paraganglion neoplasm [Unknown]

NARRATIVE: CASE EVENT DATE: 20160108
